FAERS Safety Report 6389811-3 (Version None)
Quarter: 2009Q4

REPORT INFORMATION
  Report Type: 
  Country: None (occurrence: None)
  Receive Date: 20091003
  Receipt Date: 20090922
  Transmission Date: 20100525
  Serious: Yes (Death, Hospitalization, Other)
  Sender: FDA-Public Use
  Company Number: 2009AP003878

PATIENT
  Age: 72 Year
  Sex: Male

DRUGS (3)
  1. AMIODARONE HYDROCHLORIDE [Suspect]
     Dosage: 200 MG; QD
  2. SIMVASTATIN [Concomitant]
  3. GLIPIZIDE [Concomitant]

REACTIONS (4)
  - DISEASE COMPLICATION [None]
  - HEPATIC CIRRHOSIS [None]
  - LIVER INJURY [None]
  - THERAPEUTIC AGENT TOXICITY [None]
